FAERS Safety Report 15589862 (Version 1)
Quarter: 2018Q4

REPORT INFORMATION
  Report Type: Spontaneous
  Country: FR (occurrence: FR)
  Receive Date: 20181106
  Receipt Date: 20181106
  Transmission Date: 20190205
  Serious: Yes (Death, Hospitalization, Other)
  Sender: FDA-Public Use
  Company Number: FR-009507513-1809FRA010842

PATIENT
  Age: 61 Year
  Sex: Male

DRUGS (2)
  1. TEMODAL [Suspect]
     Active Substance: TEMOZOLOMIDE
     Indication: GLIOBLASTOMA
     Dosage: 1 DAILY 5 DAYS PER MONTH
     Route: 048
     Dates: start: 20180326, end: 201809
  2. TEMODAL [Suspect]
     Active Substance: TEMOZOLOMIDE
     Dosage: 1 DAILY 5 DAYS PER MONTH
     Route: 048
     Dates: start: 20180927

REACTIONS (3)
  - Glioblastoma [Fatal]
  - Adverse event [Unknown]
  - Dysphagia [Not Recovered/Not Resolved]

NARRATIVE: CASE EVENT DATE: 2018
